FAERS Safety Report 20513250 (Version 2)
Quarter: 2024Q1

REPORT INFORMATION
  Report Type: Spontaneous
  Country: US (occurrence: US)
  Receive Date: 20220224
  Receipt Date: 20240226
  Transmission Date: 20240410
  Serious: No
  Sender: FDA-Public Use
  Company Number: US-AMNEAL PHARMACEUTICALS-2021-AMRX-01770

PATIENT
  Age: 85 Year
  Sex: Female

DRUGS (11)
  1. RYTARY [Suspect]
     Active Substance: CARBIDOPA\LEVODOPA
     Indication: Parkinson^s disease
     Dosage: 36.25/145MG, 1 CAPSULES, TID
     Route: 048
     Dates: start: 20210510, end: 20210517
  2. RYTARY [Suspect]
     Active Substance: CARBIDOPA\LEVODOPA
     Dosage: 23.75/95MG, 1 CAPSULES, TID
     Route: 048
     Dates: end: 20210411
  3. RYTARY [Suspect]
     Active Substance: CARBIDOPA\LEVODOPA
     Dosage: 23.75/95MG, 1 CAPSULES, 3 /DAY
     Route: 048
     Dates: start: 20210517
  4. RYTARY [Suspect]
     Active Substance: CARBIDOPA\LEVODOPA
     Dosage: 36.25-145MG, 1 CAPSULES, TID
     Route: 048
     Dates: start: 20220716
  5. RYTARY [Suspect]
     Active Substance: CARBIDOPA\LEVODOPA
     Dosage: 23.75-95 MG 1 CAPSULES, TID
     Route: 048
     Dates: start: 2022
  6. RYTARY [Suspect]
     Active Substance: CARBIDOPA\LEVODOPA
     Dosage: 36.25-145MG, 1 CAPSULES, TID
     Route: 048
     Dates: start: 202208
  7. RYTARY [Suspect]
     Active Substance: CARBIDOPA\LEVODOPA
     Dosage: 23.75-95 MG 1 CAPSULES, TID 36.25-145MG, 1 CAPSULES, TID
     Route: 048
     Dates: start: 20221121
  8. RYTARY [Suspect]
     Active Substance: CARBIDOPA\LEVODOPA
     Dosage: 23.75/95 MG,1 CAPSULE BY MOUTH THREE TIMES A DAY
     Route: 048
     Dates: start: 20231002
  9. RYTARY [Suspect]
     Active Substance: CARBIDOPA\LEVODOPA
     Dosage: 23.75/95 MG, 2 CAPSULE BY MOUTH THREE TIMES A DAY
     Route: 048
     Dates: start: 20231002
  10. RYTARY [Suspect]
     Active Substance: CARBIDOPA\LEVODOPA
     Dosage: 23.75/95 MG, 1 CAP TID
     Route: 048
  11. RYTARY [Suspect]
     Active Substance: CARBIDOPA\LEVODOPA
     Dosage: 23.75-95 MG,1 CAP DAILY,NO CHANGE IN RYTARY 36.25-145 MG
     Route: 048
     Dates: start: 20240110

REACTIONS (6)
  - Visual impairment [Unknown]
  - Mass [Unknown]
  - Illness [Unknown]
  - Headache [Unknown]
  - Therapy cessation [Unknown]
  - Gastrointestinal motility disorder [Unknown]

NARRATIVE: CASE EVENT DATE: 20210411
